FAERS Safety Report 20074043 (Version 1)
Quarter: 2021Q4

REPORT INFORMATION
  Report Type: Report from Study
  Country: JP (occurrence: JP)
  Receive Date: 20211116
  Receipt Date: 20211116
  Transmission Date: 20220303
  Serious: Yes (Death, Other)
  Sender: FDA-Public Use
  Company Number: JP-AMGEN-JPNNI2021145958

PATIENT
  Age: 67 Year
  Sex: Male
  Weight: 68 kg

DRUGS (15)
  1. EVOLOCUMAB [Suspect]
     Active Substance: EVOLOCUMAB
     Indication: Hypercholesterolaemia
     Dosage: 140 MILLIGRAM, Q2WK
     Route: 058
     Dates: start: 20200610
  2. EVOLOCUMAB [Suspect]
     Active Substance: EVOLOCUMAB
     Dosage: 140 MILLIGRAM, Q3WK
     Route: 058
     Dates: start: 20200722
  3. EVOLOCUMAB [Suspect]
     Active Substance: EVOLOCUMAB
     Dosage: 140 MILLIGRAM, Q2WK
     Route: 058
     Dates: start: 20200812
  4. EVOLOCUMAB [Suspect]
     Active Substance: EVOLOCUMAB
     Dosage: 140 MILLIGRAM, Q3WK
     Route: 058
     Dates: start: 20200923
  5. EVOLOCUMAB [Suspect]
     Active Substance: EVOLOCUMAB
     Dosage: 140 MILLIGRAM, Q2WK
     Route: 058
     Dates: start: 20201014
  6. EVOLOCUMAB [Suspect]
     Active Substance: EVOLOCUMAB
     Dosage: 140 MILLIGRAM, Q3WK
     Route: 058
     Dates: start: 20201125
  7. EVOLOCUMAB [Suspect]
     Active Substance: EVOLOCUMAB
     Dosage: 140 MILLIGRAM, Q2WK
     Route: 058
     Dates: start: 20201216
  8. EVOLOCUMAB [Suspect]
     Active Substance: EVOLOCUMAB
     Dosage: 140 MILLIGRAM, Q3WK
     Route: 058
     Dates: start: 20210127, end: 20210127
  9. LIPITOR [Concomitant]
     Active Substance: ATORVASTATIN CALCIUM
     Indication: Hypercholesterolaemia
     Dosage: 20 MILLIGRAM, QD
     Dates: end: 20210308
  10. CLOPIDOGREL BISULFATE [Concomitant]
     Active Substance: CLOPIDOGREL BISULFATE
     Dosage: 75 MILLIGRAM, QD
     Route: 048
     Dates: end: 20210308
  11. RABEPRAZOLE SODIUM [Concomitant]
     Active Substance: RABEPRAZOLE SODIUM
     Indication: Prophylaxis
     Dosage: 10 MILLIGRAM, QD
     Route: 048
     Dates: end: 20210308
  12. BISOPROLOL FUMARATE [Concomitant]
     Active Substance: BISOPROLOL FUMARATE
     Dosage: 1.25 MILLIGRAM, QD
     Route: 048
     Dates: end: 20210308
  13. ENALAPRIL MALEATE [Concomitant]
     Active Substance: ENALAPRIL MALEATE
     Dosage: 2.5 MILLIGRAM, QD
     Route: 048
     Dates: end: 20210308
  14. WARFARIN POTASSIUM [Concomitant]
     Active Substance: WARFARIN POTASSIUM
     Dosage: 2.5 MILLIGRAM, QD
     Route: 048
     Dates: end: 20210308
  15. BROTIZOLAM [Concomitant]
     Active Substance: BROTIZOLAM
     Dosage: 0.5 MILLIGRAM, QD
     Route: 048
     Dates: end: 20210308

REACTIONS (1)
  - Death [Fatal]

NARRATIVE: CASE EVENT DATE: 20210308
